FAERS Safety Report 13737121 (Version 7)
Quarter: 2018Q1

REPORT INFORMATION
  Report Type: Spontaneous
  Country: US (occurrence: US)
  Receive Date: 20170710
  Receipt Date: 20180306
  Transmission Date: 20180508
  Serious: No
  Sender: FDA-Public Use
  Company Number: US-BRISTOL-MYERS SQUIBB COMPANY-BMS-2017-060843

PATIENT
  Age: 55 Year
  Sex: Female
  Weight: 81.63 kg

DRUGS (3)
  1. CITALOPRAM [Concomitant]
     Active Substance: CITALOPRAM HYDROBROMIDE
     Indication: ANXIETY
     Route: 065
  2. METOPROLOL. [Concomitant]
     Active Substance: METOPROLOL
     Indication: BLOOD PRESSURE INCREASED
     Route: 065
  3. SPRYCEL [Suspect]
     Active Substance: DASATINIB
     Indication: CHRONIC MYELOID LEUKAEMIA
     Dosage: 100 MG, QD
     Route: 048
     Dates: start: 20170412

REACTIONS (9)
  - Pain [Unknown]
  - Paraesthesia [Unknown]
  - Malaise [Unknown]
  - Cyst [Unknown]
  - Alopecia [Unknown]
  - Libido decreased [Unknown]
  - Vulvovaginal pain [Not Recovered/Not Resolved]
  - Hypoaesthesia [Unknown]
  - Amnesia [Unknown]

NARRATIVE: CASE EVENT DATE: 20170601
